FAERS Safety Report 16817594 (Version 1)
Quarter: 2019Q3

REPORT INFORMATION
  Report Type: Spontaneous
  Country: US (occurrence: US)
  Receive Date: 20190917
  Receipt Date: 20190917
  Transmission Date: 20191005
  Serious: No
  Sender: FDA-Public Use
  Company Number: US-PFIZER INC-2019269220

PATIENT
  Age: 73 Year
  Sex: Female
  Weight: 67.59 kg

DRUGS (20)
  1. OMEPRAZOLE. [Concomitant]
     Active Substance: OMEPRAZOLE
     Indication: GASTROOESOPHAGEAL REFLUX DISEASE
     Dosage: 20 MG, 1X/DAY (1 CAPSULE TAKEN BY MOUTH ONCE EVERY MORNING)
     Route: 048
  2. VITAMIN B12 [Concomitant]
     Active Substance: CYANOCOBALAMIN
     Dosage: 1000 MG, 1X/DAY (1 TABLET TAKEN BY MOUTH EVERY MORNING)
     Route: 048
  3. VITAMIN D2 [Concomitant]
     Active Substance: ERGOCALCIFEROL
     Dosage: 1.25MG (50000) CAPSULE-1 CAPSULE TAKEN BY MOUTH EVERY SUNDAY MORNING
     Route: 048
  4. VENTOLIN [Concomitant]
     Active Substance: ALBUTEROL SULFATE
     Indication: LUNG DISORDER
     Dosage: 90 UG, EVERY 4 HRS (90MCG/PUFF INHALER-2 PUFFS INHALED EVERY 4 HOURS DAILY)
     Dates: start: 2017
  5. FISH OIL [Concomitant]
     Active Substance: FISH OIL
     Indication: SUPPLEMENTATION THERAPY
     Dosage: 1200 MG, 1X/DAY (1 CAPSULE TAKEN BY MOUTH EVERY MORNING)
     Route: 048
  6. LORAZEPAM. [Concomitant]
     Active Substance: LORAZEPAM
     Indication: NEURALGIA
     Dosage: 0.5 MG, AS NEEDED (0.5MG TABLET TAKEN BY MOUTH AS NEEDED)
     Route: 048
  7. SIMVASTATIN. [Concomitant]
     Active Substance: SIMVASTATIN
     Dosage: 40 MG, 1X/DAY (1 TABLET TAKEN BY MOUTH EVERY MORNING)
     Route: 048
  8. LISINOPRIL. [Concomitant]
     Active Substance: LISINOPRIL
     Indication: BLOOD PRESSURE INCREASED
     Dosage: 5 MG, 1X/DAY (1 TABLET TAKEN BY MOUTH ONCE DAILY)
     Route: 048
  9. BIOTIN [Concomitant]
     Active Substance: BIOTIN
     Indication: SUPPLEMENTATION THERAPY
     Dosage: 5000 MG, DAILY(5000MG CAPSULE-1 CAPSULE TAKEN BY MOUTH DAILY EVERY MORNING)
     Route: 048
  10. BREO ELLIPTA [Concomitant]
     Active Substance: FLUTICASONE FUROATE\VILANTEROL TRIFENATATE
     Indication: LUNG DISORDER
     Dosage: 200MCG/25MCG INHALER- 1 PUFF INHALED EVERY NIGHT
     Dates: start: 2017
  11. METFORMIN HCL [Concomitant]
     Active Substance: METFORMIN HYDROCHLORIDE
     Indication: DIABETES MELLITUS
     Dosage: 1000 MG, 2X/DAY (500MG TABLET-2 TABLETS TAKEN BY MOUTH TWICE DAILY: MORNING AND NIGHT)
  12. METOPROLOL TARTRATE. [Concomitant]
     Active Substance: METOPROLOL TARTRATE
     Indication: CARDIAC DISORDER
     Dosage: 25 MG, 1X/DAY (25MG TABLET-1 TABLET TAKEN BY MOUTH ONCE EVERY MORNING)
     Route: 048
     Dates: start: 2007
  13. NITROSTAT [Concomitant]
     Active Substance: NITROGLYCERIN
     Indication: CHEST PAIN
     Dosage: UNK, AS NEEDED (1/150GR 100S-1 TABLET PUT UNDER TONGUE AS NEEDED)
     Route: 060
  14. CHANTIX [Suspect]
     Active Substance: VARENICLINE TARTRATE
     Indication: EX-TOBACCO USER
     Dosage: UNK, 2X/DAY (FOLLOWING 1 IN AM, 1 IN EVENING, BY MOUTH)
     Route: 048
  15. CENTRUM FOR WOMEN [Concomitant]
     Active Substance: VITAMINS
     Indication: HYPOVITAMINOSIS
     Dosage: 1 DF, 1X/DAY (1 TABLET TAKEN BY MOUTH EVERY MORNING)
  16. SERTRALINE [Concomitant]
     Active Substance: SERTRALINE HYDROCHLORIDE
     Indication: DEPRESSION
     Dosage: 100 MG, 1X/DAY(1 TABLET TAKEN BY MOUTH NIGHTLY)
     Route: 048
     Dates: end: 20190616
  17. BAYER ASPIRIN [Concomitant]
     Active Substance: ASPIRIN
     Indication: VASCULAR DEVICE USER
     Dosage: 81 MG, 1X/DAY (81MG TABLET-1 TABLET TAKEN BY MOUTH EVERY MORNING)
     Route: 048
     Dates: start: 2007
  18. ECHINACEA [Concomitant]
     Active Substance: ECHINACEA, UNSPECIFIED
     Indication: IMMUNE SYSTEM DISORDER
     Dosage: 400 MG, 1X/DAY (1 CAPSULE TAKEN BY MOUTH EVERY MORNING)
     Route: 048
  19. LEVOTHYROXINE. [Concomitant]
     Active Substance: LEVOTHYROXINE
     Indication: THYROID DISORDER
     Dosage: 0.1 MG, DAILY(1 TABLET TAKEN BY MOUTH AT NOON DAILY)
     Route: 048
     Dates: start: 2007
  20. SPIRONOLACTONE. [Concomitant]
     Active Substance: SPIRONOLACTONE
     Indication: BLOOD PRESSURE INCREASED
     Dosage: 25 MG, 1X/DAY (25MG TABLET-1 TABLET TAKEN BY MOUTH EVERY MORNING)
     Route: 048

REACTIONS (2)
  - Nausea [Unknown]
  - Weight fluctuation [Unknown]
